FAERS Safety Report 9819271 (Version 1)
Quarter: 2014Q1

REPORT INFORMATION
  Report Type: Spontaneous
  Country: US (occurrence: US)
  Receive Date: 20140115
  Receipt Date: 20140115
  Transmission Date: 20141002
  Serious: Yes (Death, Life-Threatening, Hospitalization, Other)
  Sender: FDA-Public Use
  Company Number: US-ROXANE LABORATORIES, INC.-2014-RO-00032RO

PATIENT
  Age: 53 Year
  Sex: Female

DRUGS (13)
  1. AZATHIOPRINE [Suspect]
     Indication: NEUROPATHY PERIPHERAL
     Dosage: 50 MG
     Route: 048
  2. METHYLPREDNISOLONE [Concomitant]
     Indication: SYSTEMIC LUPUS ERYTHEMATOSUS
     Dosage: 4 MG
  3. METHYLPREDNISOLONE [Concomitant]
     Dosage: 48 MG
     Route: 042
  4. METHYLPREDNISOLONE [Concomitant]
     Dosage: 1 G
     Route: 042
  5. DIGOXIN [Concomitant]
  6. FUROSEMIDE [Concomitant]
  7. CLOPIDOGREL [Concomitant]
  8. POTASSIUM CHLORIDE [Concomitant]
  9. RANITIDINE [Concomitant]
  10. GABAPENTIN [Concomitant]
  11. RISEDRONATE [Concomitant]
  12. BENAZEPRIL [Concomitant]
  13. VITAMIN D [Concomitant]

REACTIONS (11)
  - Bone marrow failure [Fatal]
  - Aplastic anaemia [Unknown]
  - Respiratory failure [Unknown]
  - Pulmonary alveolar haemorrhage [Unknown]
  - Febrile neutropenia [Unknown]
  - Staphylococcal sepsis [Unknown]
  - Candida infection [Unknown]
  - Bacteroides infection [Unknown]
  - Zygomycosis [Unknown]
  - Decreased appetite [Unknown]
  - Alopecia [Unknown]
